FAERS Safety Report 7557012-9 (Version None)
Quarter: 2011Q2

REPORT INFORMATION
  Report Type: 
  Country: None (occurrence: None)
  Receive Date: 20110620
  Receipt Date: 20110615
  Transmission Date: 20111010
  Serious: Yes (Hospitalization)
  Sender: FDA-Public Use
  Company Number: PHHO2010DE08628

PATIENT
  Sex: Female
  Weight: 83 kg

DRUGS (5)
  1. LETROZOLE [Suspect]
     Indication: BREAST CANCER
     Dosage: 2.5 MG, QD
     Route: 048
     Dates: start: 20061213
  2. ZOLPIDEM [Concomitant]
     Indication: INSOMNIA
  3. ESTRIOL [Concomitant]
     Indication: VAGINAL INFECTION
  4. SIMVASTATIN [Concomitant]
     Indication: HYPERCHOLESTEROLAEMIA
  5. ZOMETA [Suspect]
     Indication: BREAST CANCER
     Dosage: 4 MG, PER 6 MONTHS
     Route: 042
     Dates: start: 20061213

REACTIONS (1)
  - BACK PAIN [None]
